FAERS Safety Report 5884492-7 (Version None)
Quarter: 2008Q3

REPORT INFORMATION
  Report Type: 
  Country: None (occurrence: None)
  Receive Date: 20080911
  Receipt Date: 20080827
  Transmission Date: 20090109
  Serious: Yes (Other)
  Sender: FDA-Public Use
  Company Number: 230006M08CHE

PATIENT
  Sex: Male

DRUGS (1)
  1. REBIF [Suspect]

REACTIONS (5)
  - CENTRAL NERVOUS SYSTEM LESION [None]
  - FEAR [None]
  - INAPPROPRIATE SCHEDULE OF DRUG ADMINISTRATION [None]
  - PSYCHOTIC DISORDER [None]
  - TREATMENT NONCOMPLIANCE [None]
